FAERS Safety Report 8564691-6 (Version None)
Quarter: 2012Q3

REPORT INFORMATION
  Report Type: 
  Country: None (occurrence: None)
  Receive Date: 20120803
  Receipt Date: 20120721
  Transmission Date: 20120928
  Serious: Yes (Hospitalization, Other)
  Sender: FDA-Public Use
  Company Number: DE-ELI_LILLY_AND_COMPANY-DE201206009633

PATIENT
  Sex: Male

DRUGS (15)
  1. HUMALOG [Suspect]
     Dosage: 4 IU, QD
  2. TARGIN [Concomitant]
  3. CYMBALTA [Concomitant]
  4. TALCID [Concomitant]
     Dosage: UNK, PRN
  5. HUMALOG [Suspect]
     Dosage: 12 IU, EACH EVENING
  6. LEVEMIR [Concomitant]
     Dosage: 12 IU, EACH MORNING
  7. METOCLOPRAMIDE [Concomitant]
  8. LANTUS [Concomitant]
  9. SEROQUEL [Concomitant]
  10. DICLOFENAC SODIUM [Concomitant]
     Dosage: UNK, PRN
  11. HUMALOG [Suspect]
     Indication: DIABETES MELLITUS
     Dosage: UNK, PRN
     Route: 058
  12. PANTOPRAZOLE [Concomitant]
  13. HUMALOG [Suspect]
     Dosage: 12 IU, EACH MORNING
  14. LEVEMIR [Concomitant]
     Dosage: 9 IU, EACH EVENING
  15. DIPYRONE TAB [Concomitant]

REACTIONS (19)
  - PRERENAL FAILURE [None]
  - HEPATIC STEATOSIS [None]
  - RENAL DISORDER [None]
  - PELVIC FRACTURE [None]
  - DIABETIC NEUROPATHY [None]
  - VOMITING [None]
  - PARAESTHESIA [None]
  - INCORRECT DOSE ADMINISTERED [None]
  - NAUSEA [None]
  - VITAMIN D DEFICIENCY [None]
  - DEHYDRATION [None]
  - GLYCOSYLATED HAEMOGLOBIN INCREASED [None]
  - FRACTURE [None]
  - NEUROPATHIC ARTHROPATHY [None]
  - PAIN IN EXTREMITY [None]
  - DIABETIC KETOACIDOSIS [None]
  - BLOOD GLUCOSE INCREASED [None]
  - INTERVERTEBRAL DISC PROTRUSION [None]
  - FOOT FRACTURE [None]
